FAERS Safety Report 12807786 (Version 1)
Quarter: 2016Q4

REPORT INFORMATION
  Report Type: Spontaneous
  Country: US (occurrence: US)
  Receive Date: 20161004
  Receipt Date: 20161004
  Transmission Date: 20170207
  Serious: No
  Sender: FDA-Public Use
  Company Number: US-AMGEN-USASP2016070368

PATIENT
  Age: 63 Year
  Sex: Male

DRUGS (6)
  1. CALCITONIN SALMON. [Concomitant]
     Active Substance: CALCITONIN SALMON
  2. XTANDI [Suspect]
     Active Substance: ENZALUTAMIDE
     Indication: PROSTATE CANCER
     Dosage: 120 MG, QD
     Route: 048
     Dates: start: 20150918
  3. DEXAMETHASONE. [Concomitant]
     Active Substance: DEXAMETHASONE
     Dosage: UNK
  4. XGEVA [Suspect]
     Active Substance: DENOSUMAB
     Indication: PRODUCT USED FOR UNKNOWN INDICATION
     Dosage: UNK
     Route: 065
  5. LUPRON [Concomitant]
     Active Substance: LEUPROLIDE ACETATE
     Dosage: UNK
  6. MORPHINE SULF [Concomitant]
     Active Substance: MORPHINE SULFATE
     Dosage: UNK

REACTIONS (7)
  - Hallucination [Unknown]
  - Memory impairment [Recovering/Resolving]
  - Restless legs syndrome [Unknown]
  - Nausea [Recovering/Resolving]
  - Insomnia [Unknown]
  - Prostatic specific antigen increased [Unknown]
  - Vomiting [Recovering/Resolving]
